FAERS Safety Report 15774324 (Version 2)
Quarter: 2019Q1

REPORT INFORMATION
  Report Type: Spontaneous
  Country: CN (occurrence: CN)
  Receive Date: 20181229
  Receipt Date: 20190111
  Transmission Date: 20190417
  Serious: Yes (Other)
  Sender: FDA-Public Use
  Company Number: CN-ACCORD-098031

PATIENT
  Age: 57 Year
  Sex: Male

DRUGS (2)
  1. GEMCITABINE/GEMCITABINE HYDROCHLORIDE [Suspect]
     Active Substance: GEMCITABINE\GEMCITABINE HYDROCHLORIDE
     Indication: LUNG ADENOCARCINOMA
  2. NEDAPLATIN [Suspect]
     Active Substance: NEDAPLATIN
     Indication: LUNG ADENOCARCINOMA

REACTIONS (2)
  - General physical condition decreased [Recovering/Resolving]
  - Pneumonia [Recovering/Resolving]
